FAERS Safety Report 5827169-6 (Version None)
Quarter: 2008Q3

REPORT INFORMATION
  Report Type: 
  Country: None (occurrence: None)
  Receive Date: 20080730
  Receipt Date: 20080725
  Transmission Date: 20090109
  Serious: Yes (Hospitalization)
  Sender: FDA-Public Use
  Company Number: US-GILEAD-2008-0017356

PATIENT
  Sex: Female
  Weight: 136.65 kg

DRUGS (10)
  1. LETAIRIS [Suspect]
     Indication: PULMONARY ARTERIAL HYPERTENSION
     Route: 048
     Dates: start: 20080522
  2. VIAGRA [Concomitant]
  3. EPOPROSTENOL SODIUM [Concomitant]
  4. COUMADIN [Concomitant]
     Route: 048
  5. ACTOS [Concomitant]
     Route: 048
  6. LANTUS [Concomitant]
  7. ASPIRIN [Concomitant]
     Indication: PAIN
     Route: 048
  8. RENAGEL [Concomitant]
     Route: 048
  9. LACTOBACILLU [Concomitant]
  10. FISH OIL [Concomitant]
     Route: 048

REACTIONS (2)
  - DYSPNOEA [None]
  - PYREXIA [None]
